FAERS Safety Report 24720664 (Version 1)
Quarter: 2024Q4

REPORT INFORMATION
  Report Type: Spontaneous
  Country: US (occurrence: US)
  Receive Date: 20241211
  Receipt Date: 20241211
  Transmission Date: 20250114
  Serious: Yes (Other)
  Sender: Kenvue
  Company Number: US-KENVUE-20241202219

PATIENT

DRUGS (1)
  1. ACETAMINOPHEN [Suspect]
     Active Substance: ACETAMINOPHEN
     Indication: Product used for unknown indication
     Route: 065

REACTIONS (3)
  - Acute hepatic failure [Unknown]
  - Blood creatinine increased [Unknown]
  - Overdose [Unknown]
